FAERS Safety Report 5871976-0 (Version None)
Quarter: 2008Q3

REPORT INFORMATION
  Report Type: 
  Country: None (occurrence: None)
  Receive Date: 20080905
  Receipt Date: 20080828
  Transmission Date: 20090109
  Serious: Yes (Hospitalization)
  Sender: FDA-Public Use
  Company Number: US-WATSON-2008-05222

PATIENT
  Sex: Female

DRUGS (2)
  1. PROPRANOLOL [Suspect]
     Indication: SUPRAVENTRICULAR TACHYCARDIA
     Dosage: 40 MG, TID
     Route: 048
     Dates: start: 20080701, end: 20080718
  2. HUMALOG [Concomitant]
     Indication: DIABETES MELLITUS
     Dosage: 80 U, DAILY (75/25)
     Route: 058
     Dates: start: 20030101

REACTIONS (8)
  - ABDOMINAL PAIN UPPER [None]
  - BLOOD PRESSURE INCREASED [None]
  - DIARRHOEA [None]
  - DIZZINESS [None]
  - DRUG WITHDRAWAL SYNDROME [None]
  - REACTION TO DRUG EXCIPIENTS [None]
  - SUPRAVENTRICULAR TACHYCARDIA [None]
  - VOMITING [None]
